FAERS Safety Report 4897151-4 (Version None)
Quarter: 2006Q1

REPORT INFORMATION
  Report Type: 
  Country: None (occurrence: None)
  Receive Date: 20060131
  Receipt Date: 20060125
  Transmission Date: 20060701
  Serious: Yes (Hospitalization)
  Sender: FDA-Public Use
  Company Number: US-MERCK-0601USA03018

PATIENT
  Age: 75 Year
  Sex: Male

DRUGS (4)
  1. VYTORIN [Suspect]
     Indication: BLOOD CHOLESTEROL INCREASED
     Route: 048
     Dates: start: 20050401, end: 20050401
  2. SYNTHROID [Concomitant]
     Route: 065
  3. [COMPOSITION UNSPECIFIED] [Concomitant]
     Indication: DIABETES MELLITUS
     Route: 065
  4. [COMPOSITION UNSPECIFIED] [Concomitant]
     Indication: CARDIAC DISORDER
     Route: 065

REACTIONS (3)
  - BLOOD GLUCOSE DECREASED [None]
  - SWELLING FACE [None]
  - SWOLLEN TONGUE [None]
